FAERS Safety Report 7185327 (Version 2)
Quarter: 2013Q1

REPORT INFORMATION
  Report Type: Report from Study
  Country: AU (occurrence: AU)
  Receive Date: 20091123
  Receipt Date: 20130213
  Transmission Date: 20140127
  Serious: Yes (Hospitalization, Other)
  Sender: FDA-Public Use
  Company Number: PHHY2009AU49083

PATIENT
  Age: 35 Year
  Sex: Female
  Weight: 75.9 kg

DRUGS (5)
  1. CLOZARIL [Suspect]
     Dosage: 500 MG, UNK
     Dates: start: 20090505
  2. CLOZARIL [Suspect]
     Dosage: 300 MG, UNK
     Route: 048
     Dates: start: 20130121
  3. PANTOPRAZOLE [Concomitant]
     Dosage: 40 MG, UNK
     Route: 048
  4. THYROXINE [Concomitant]
     Dosage: 50 UG, UNK
     Route: 048
  5. OLANZAPINE [Concomitant]
     Dosage: 5 MG, BID
     Route: 048

REACTIONS (4)
  - Mental disorder [Unknown]
  - Delusion [Unknown]
  - Schizophrenia [Recovering/Resolving]
  - Abnormal behaviour [Recovering/Resolving]
